FAERS Safety Report 17355430 (Version 26)
Quarter: 2025Q3

REPORT INFORMATION
  Report Type: Report from Study
  Country: US (occurrence: US)
  Receive Date: 20200131
  Receipt Date: 20250902
  Transmission Date: 20251021
  Serious: Yes (Hospitalization, Other)
  Sender: TAKEDA
  Company Number: US-SHIRE-US202003415

PATIENT
  Age: 50 Year
  Sex: Female
  Weight: 115 kg

DRUGS (42)
  1. HUMAN IMMUNOGLOBULIN G [Suspect]
     Active Substance: HUMAN IMMUNOGLOBULIN G
     Indication: Immunodeficiency
     Dosage: 25 GRAM, Q2WEEKS
  2. HUMAN IMMUNOGLOBULIN G [Suspect]
     Active Substance: HUMAN IMMUNOGLOBULIN G
     Indication: Immunodeficiency common variable
     Dosage: 30 GRAM, Q2WEEKS
  3. HUMAN IMMUNOGLOBULIN G [Suspect]
     Active Substance: HUMAN IMMUNOGLOBULIN G
     Dosage: 16 GRAM, 1/WEEK
  4. HUMAN IMMUNOGLOBULIN G [Suspect]
     Active Substance: HUMAN IMMUNOGLOBULIN G
     Dosage: 18 GRAM, 1/WEEK
  5. HUMAN IMMUNOGLOBULIN G [Suspect]
     Active Substance: HUMAN IMMUNOGLOBULIN G
     Dosage: 18 GRAM, 1/WEEK
  6. HUMAN IMMUNOGLOBULIN G [Suspect]
     Active Substance: HUMAN IMMUNOGLOBULIN G
     Dosage: 18 GRAM, 1/WEEK
  7. DIPHENHYDRAMINE [Concomitant]
     Active Substance: DIPHENHYDRAMINE
  8. SUMATRIPTAN SUCCINATE [Concomitant]
     Active Substance: SUMATRIPTAN SUCCINATE
  9. METOPROLOL SUCCINATE [Concomitant]
     Active Substance: METOPROLOL SUCCINATE
  10. EPINEPHRINE [Concomitant]
     Active Substance: EPINEPHRINE
  11. ACETAMINOPHEN [Concomitant]
     Active Substance: ACETAMINOPHEN
  12. VITAMIN D3 [Concomitant]
     Active Substance: CHOLECALCIFEROL
  13. VITAMIN E [Concomitant]
     Active Substance: .ALPHA.-TOCOPHEROL
  14. MYRBETRIQ [Concomitant]
     Active Substance: MIRABEGRON
  15. XARELTO [Concomitant]
     Active Substance: RIVAROXABAN
  16. MORPHINE SULFATE [Concomitant]
     Active Substance: MORPHINE SULFATE
  17. SENNA-S [Concomitant]
     Active Substance: DOCUSATE SODIUM\SENNOSIDES
  18. DICLOFENAC SODIUM [Concomitant]
     Active Substance: DICLOFENAC SODIUM
  19. FISH OIL [Concomitant]
     Active Substance: FISH OIL
  20. GABAPENTIN [Concomitant]
     Active Substance: GABAPENTIN
  21. AMBIEN [Concomitant]
     Active Substance: ZOLPIDEM TARTRATE
  22. NEXIUM [Concomitant]
     Active Substance: ESOMEPRAZOLE MAGNESIUM
  23. OXYCODONE [Concomitant]
     Active Substance: OXYCODONE
  24. AMITRIPTYLINE HYDROCHLORIDE [Concomitant]
     Active Substance: AMITRIPTYLINE HYDROCHLORIDE
  25. XYZAL [Concomitant]
     Active Substance: LEVOCETIRIZINE DIHYDROCHLORIDE
  26. TIZANIDINE HYDROCHLORIDE [Concomitant]
     Active Substance: TIZANIDINE HYDROCHLORIDE
  27. LIDOCAINE [Concomitant]
     Active Substance: LIDOCAINE
  28. LYRICA [Concomitant]
     Active Substance: PREGABALIN
  29. Lmx [Concomitant]
  30. CYMBALTA [Concomitant]
     Active Substance: DULOXETINE HYDROCHLORIDE
  31. FERROUS SULFATE [Concomitant]
     Active Substance: FERROUS SULFATE
  32. HERBALS\TURMERIC [Concomitant]
     Active Substance: HERBALS\TURMERIC
  33. DIPHENHYDRAMINE HYDROCHLORIDE [Concomitant]
     Active Substance: DIPHENHYDRAMINE HYDROCHLORIDE
  34. TIZANIDINE [Concomitant]
     Active Substance: TIZANIDINE
  35. DICLOFENAC [Concomitant]
     Active Substance: DICLOFENAC
  36. SUMATRIPTAN [Concomitant]
     Active Substance: SUMATRIPTAN
  37. MORPHINE [Concomitant]
     Active Substance: MORPHINE
  38. IRON [Concomitant]
     Active Substance: IRON
  39. COENZYME Q10 [Concomitant]
     Active Substance: DIETARY SUPPLEMENT\UBIDECARENONE
  40. METOPROLOL [Concomitant]
     Active Substance: METOPROLOL
  41. AMITRIPTYLINE [Concomitant]
     Active Substance: AMITRIPTYLINE
  42. OXYCODONE HYDROCHLORIDE [Concomitant]
     Active Substance: OXYCODONE HYDROCHLORIDE

REACTIONS (23)
  - COVID-19 pneumonia [Unknown]
  - Arthritis infective [Unknown]
  - Anaemia [Unknown]
  - Cubital tunnel syndrome [Unknown]
  - Sinusitis [Unknown]
  - Mammogram abnormal [Unknown]
  - Ear infection [Unknown]
  - Post procedural complication [Unknown]
  - Food allergy [Unknown]
  - Fall [Unknown]
  - Respiratory syncytial virus infection [Unknown]
  - COVID-19 [Unknown]
  - Bronchitis [Unknown]
  - Depression [Unknown]
  - Urinary tract infection [Unknown]
  - Product dose omission issue [Unknown]
  - Product administered at inappropriate site [Unknown]
  - Wrong technique in product usage process [Unknown]
  - Cystitis [Unknown]
  - Infusion site reaction [Unknown]
  - Influenza [Unknown]
  - Vomiting [Unknown]
  - Diarrhoea [Unknown]

NARRATIVE: CASE EVENT DATE: 20210816
